FAERS Safety Report 6940515-5 (Version None)
Quarter: 2010Q3

REPORT INFORMATION
  Report Type: 
  Country: None (occurrence: None)
  Receive Date: 20100825
  Receipt Date: 20100819
  Transmission Date: 20110219
  Serious: Yes (Other)
  Sender: FDA-Public Use
  Company Number: US-SANOFI-AVENTIS-2010SA050097

PATIENT
  Age: 55 Year
  Sex: Male

DRUGS (3)
  1. LANTUS [Suspect]
     Indication: TYPE 2 DIABETES MELLITUS
     Dosage: DOSE:45 UNIT(S)
     Route: 058
     Dates: start: 20040101
  2. OPTICLICK [Suspect]
     Indication: TYPE 2 DIABETES MELLITUS
     Dates: start: 20040101
  3. FISH OIL [Concomitant]
     Dosage: 12 CAPS A DAY
     Dates: start: 20040101

REACTIONS (5)
  - BLOOD GLUCOSE INCREASED [None]
  - FOOT OPERATION [None]
  - HYPERGLYCAEMIA [None]
  - SENSORY LOSS [None]
  - TENDON RUPTURE [None]
